FAERS Safety Report 9403043 (Version 1)
Quarter: 2013Q3

REPORT INFORMATION
  Report Type: Spontaneous
  Country: US (occurrence: US)
  Receive Date: 20130712
  Receipt Date: 20130712
  Transmission Date: 20140515
  Serious: Yes (Hospitalization, Other)
  Sender: FDA-Public Use
  Company Number: C-13-067

PATIENT
  Age: 50 Year
  Sex: Male
  Weight: 131.54 kg

DRUGS (19)
  1. INDOMETHACIN [Suspect]
     Route: 048
  2. TECHNETIUM-99M ARCITUMOMAB [Suspect]
     Indication: WHITE BLOOD CELL SCAN
  3. ASPIRIN [Concomitant]
  4. DIGOXIN [Concomitant]
  5. FERROUS SULFATE [Concomitant]
  6. ERYTHROPOIETIN [Concomitant]
  7. INSULIN GLARGINE [Concomitant]
  8. INSULIN LISPRO [Concomitant]
  9. METOPROLOL [Concomitant]
  10. METOPROLOL [Concomitant]
  11. MAGNESIUM OXIDE [Concomitant]
  12. PANTOPRAZOLE [Concomitant]
  13. RENAL MULTIVITAMINS [Concomitant]
  14. TRAMADOL [Concomitant]
  15. CEFAZOLIN [Concomitant]
  16. COLCHICINE [Concomitant]
  17. DOCUSATE SODIUM\SENNOSIDES [Concomitant]
  18. COUMADIN [Concomitant]
  19. VANCOMYCIN [Concomitant]

REACTIONS (10)
  - Device related infection [None]
  - Haemoglobin decreased [None]
  - Hyponatraemia [None]
  - Osteoarthritis [None]
  - Sacroiliitis [None]
  - Osteomyelitis [None]
  - Papule [None]
  - Erythema [None]
  - Septic embolus [None]
  - Drug hypersensitivity [None]
